FAERS Safety Report 15556803 (Version 1)
Quarter: 2018Q4

REPORT INFORMATION
  Report Type: Spontaneous
  Country: AU (occurrence: AU)
  Receive Date: 20181026
  Receipt Date: 20181026
  Transmission Date: 20190205
  Serious: Yes (Other)
  Sender: FDA-Public Use
  Company Number: AU-SAKK-2018SA292447AA

PATIENT
  Sex: Male

DRUGS (6)
  1. METOPROLOL. [Concomitant]
     Active Substance: METOPROLOL
  2. SPREN [Concomitant]
  3. PLAVIX [Suspect]
     Active Substance: CLOPIDOGREL BISULFATE
     Dosage: UNK
  4. ROSUVASTATIN. [Concomitant]
     Active Substance: ROSUVASTATIN
     Dosage: UNK
  5. SOMAC [Concomitant]
     Active Substance: PANTOPRAZOLE SODIUM
  6. NATURES OWN COMPLETE SLEEP ADVANCED [Interacting]
     Active Substance: DIETARY SUPPLEMENT\HERBALS
     Dosage: 2 DF, HS

REACTIONS (2)
  - Myocardial infarction [Recovering/Resolving]
  - Drug interaction [Unknown]
